FAERS Safety Report 24926941 (Version 1)
Quarter: 2025Q1

REPORT INFORMATION
  Report Type: Spontaneous
  Country: GB (occurrence: GB)
  Receive Date: 20250205
  Receipt Date: 20250205
  Transmission Date: 20250409
  Serious: Yes (Death, Other)
  Sender: CELLTRION
  Company Number: None

PATIENT

DRUGS (2)
  1. RITUXIMAB [Suspect]
     Active Substance: RITUXIMAB
     Indication: Haemophilia
     Dates: start: 20241121, end: 20250105
  2. RITUXIMAB [Suspect]
     Active Substance: RITUXIMAB
     Indication: Hypercoagulation

REACTIONS (4)
  - Pneumonitis [Fatal]
  - Acute lung injury [Unknown]
  - Pneumocystis jirovecii pneumonia [Not Recovered/Not Resolved]
  - Intentional product use issue [Unknown]
